FAERS Safety Report 18415760 (Version 5)
Quarter: 2021Q2

REPORT INFORMATION
  Report Type: Spontaneous
  Country: IN (occurrence: IN)
  Receive Date: 20201022
  Receipt Date: 20210429
  Transmission Date: 20210717
  Serious: Yes (Other)
  Sender: FDA-Public Use
  Company Number: IN-PFIZER INC-2018296206

PATIENT
  Age: 61 Year
  Sex: Male

DRUGS (2)
  1. SUTENT [Suspect]
     Active Substance: SUNITINIB MALATE
     Dosage: 37.5 MG, CYCLIC (3 TABLETS OF 12.5 MG,MG, ONCE DAILY FOR 2 WEEKS ON 1 WEEK OFF)
     Route: 048
     Dates: start: 20190708
  2. SUTENT [Suspect]
     Active Substance: SUNITINIB MALATE
     Indication: METASTATIC RENAL CELL CARCINOMA
     Dosage: 50 MG, CYCLIC (50 MG, ONCE DAILY FOR 2 WEEKS ON 1 WEEK OFF)
     Route: 048
     Dates: start: 20180707

REACTIONS (16)
  - Proctalgia [Unknown]
  - Fatigue [Unknown]
  - Asthenia [Not Recovered/Not Resolved]
  - Aspartate aminotransferase increased [Unknown]
  - Genital ulceration [Recovering/Resolving]
  - Blood count abnormal [Unknown]
  - Pain [Unknown]
  - Alanine aminotransferase increased [Unknown]
  - Syncope [Unknown]
  - Back pain [Not Recovered/Not Resolved]
  - Weight decreased [Unknown]
  - Dyschezia [Unknown]
  - Genital rash [Not Recovered/Not Resolved]
  - Dyspepsia [Unknown]
  - Neoplasm progression [Unknown]
  - Pyrexia [Unknown]

NARRATIVE: CASE EVENT DATE: 20201020
